FAERS Safety Report 5726873-8 (Version None)
Quarter: 2008Q2

REPORT INFORMATION
  Report Type: 
  Country: None (occurrence: None)
  Receive Date: 20080502
  Receipt Date: 20080422
  Transmission Date: 20081010
  Serious: Yes (Hospitalization, Other)
  Sender: FDA-Public Use
  Company Number: US-PFIZER INC-2008036076

PATIENT
  Age: 44 Year
  Sex: Female

DRUGS (1)
  1. CELEBREX [Suspect]
     Indication: RHEUMATOID ARTHRITIS

REACTIONS (6)
  - ARRHYTHMIA [None]
  - EYELID PTOSIS [None]
  - FACIAL PALSY [None]
  - GENERAL PHYSICAL HEALTH DETERIORATION [None]
  - RENAL ATROPHY [None]
  - RENAL FAILURE [None]
